FAERS Safety Report 7889148-7 (Version None)
Quarter: 2011Q4

REPORT INFORMATION
  Report Type: 
  Country: None (occurrence: None)
  Receive Date: 20111103
  Receipt Date: 20111027
  Transmission Date: 20120403
  Serious: Yes (Hospitalization)
  Sender: FDA-Public Use
  Company Number: US-PFIZER INC-2011239048

PATIENT
  Sex: Male

DRUGS (1)
  1. SUTENT [Suspect]
     Indication: METASTATIC RENAL CELL CARCINOMA
     Dosage: 50 MG, DAILY, 4 WEEKS ON AND 2 OFF
     Route: 048
     Dates: start: 20110923, end: 20111016

REACTIONS (3)
  - DEHYDRATION [None]
  - URINE COLOUR ABNORMAL [None]
  - ASTHENIA [None]
